FAERS Safety Report 19073256 (Version 1)
Quarter: 2021Q1

REPORT INFORMATION
  Report Type: Spontaneous
  Country: IE (occurrence: IE)
  Receive Date: 20210330
  Receipt Date: 20210330
  Transmission Date: 20210420
  Serious: Yes (Disabling, Other)
  Sender: FDA-Public Use
  Company Number: IE-TAKEDA-2021TEU003074

PATIENT
  Age: 68 Year
  Sex: Male
  Weight: 122 kg

DRUGS (11)
  1. SOTALOL. [Concomitant]
     Active Substance: SOTALOL
     Indication: HYPERTENSION
     Dosage: 80 MILLIGRAM, Q12H
     Dates: start: 20180702
  2. ACTOS [Suspect]
     Active Substance: PIOGLITAZONE HYDROCHLORIDE
     Indication: TYPE 2 DIABETES MELLITUS
     Dosage: 30 MILLIGRAM, QD
     Route: 048
     Dates: start: 20190729, end: 20210219
  3. TRINOMIA [ACETYLSALICYLIC ACID;ATORVASTATIN CALCIUM;RAMIPRIL] [Concomitant]
     Active Substance: ASPIRIN\ATORVASTATIN CALCIUM\RAMIPRIL
     Indication: HYPERTENSION
  4. PENTASA [Concomitant]
     Active Substance: MESALAMINE
     Indication: CROHN^S DISEASE
     Dosage: 1 GRAM, Q8HR
     Dates: start: 20040716
  5. TRINOMIA [ACETYLSALICYLIC ACID;ATORVASTATIN CALCIUM;RAMIPRIL] [Concomitant]
     Active Substance: ASPIRIN\ATORVASTATIN CALCIUM\RAMIPRIL
     Indication: CEREBROVASCULAR ACCIDENT
  6. IMDUR [Concomitant]
     Active Substance: ISOSORBIDE MONONITRATE
     Indication: CORONARY ARTERY DISEASE
     Dosage: 60 MILLIGRAM, QD
     Dates: start: 20010727
  7. GLICLAZIDE [Concomitant]
     Active Substance: GLICLAZIDE
     Indication: TYPE 2 DIABETES MELLITUS
     Dosage: 60 MILLIGRAM, QD
     Dates: start: 20180702
  8. JANUMET [Concomitant]
     Active Substance: METFORMIN HYDROCHLORIDE\SITAGLIPTIN PHOSPHATE
     Indication: TYPE 2 DIABETES MELLITUS
     Dosage: UNK UNK, Q12H
     Dates: start: 20110511
  9. PRADAXA [Concomitant]
     Active Substance: DABIGATRAN ETEXILATE MESYLATE
     Indication: ATRIAL FIBRILLATION
     Dosage: 150 MILLIGRAM, Q12H
     Dates: start: 20180702
  10. SOTALOL. [Concomitant]
     Active Substance: SOTALOL
     Indication: ATRIAL FIBRILLATION
  11. TRINOMIA [ACETYLSALICYLIC ACID;ATORVASTATIN CALCIUM;RAMIPRIL] [Concomitant]
     Active Substance: ASPIRIN\ATORVASTATIN CALCIUM\RAMIPRIL
     Indication: HYPERLIPIDAEMIA
     Dosage: UNK UNK, QD
     Dates: start: 20180209

REACTIONS (2)
  - Hip fracture [Not Recovered/Not Resolved]
  - Hip fracture [Not Recovered/Not Resolved]

NARRATIVE: CASE EVENT DATE: 20201124
